FAERS Safety Report 16137627 (Version 1)
Quarter: 2019Q1

REPORT INFORMATION
  Report Type: Report from Study
  Country: None (occurrence: AU)
  Receive Date: 20190330
  Receipt Date: 20190330
  Transmission Date: 20190418
  Serious: Yes (Hospitalization)
  Sender: FDA-Public Use
  Company Number: AU-ABBVIE-19K-008-2723121-00

PATIENT
  Sex: Male

DRUGS (1)
  1. HUMIRA [Suspect]
     Active Substance: ADALIMUMAB
     Indication: CROHN^S DISEASE
     Route: 058

REACTIONS (3)
  - Dehydration [Unknown]
  - Renal disorder [Recovering/Resolving]
  - Influenza [Recovering/Resolving]
